FAERS Safety Report 5039982-6 (Version None)
Quarter: 2006Q2

REPORT INFORMATION
  Report Type: 
  Country: None (occurrence: None)
  Receive Date: 20060630
  Receipt Date: 20060524
  Transmission Date: 20061013
  Serious: Yes (Death)
  Sender: FDA-Public Use
  Company Number: 2006AP02346

PATIENT
  Age: 66 Year
  Sex: Male

DRUGS (3)
  1. TENORMIN [Suspect]
     Route: 048
  2. DIOVAN [Suspect]
     Indication: COMPLETED SUICIDE
     Dosage: 15 TABLETS
     Route: 048
     Dates: start: 20060522, end: 20060522
  3. CALBLOCK [Suspect]
     Indication: COMPLETED SUICIDE
     Dosage: 15 TABLETS
     Route: 048
     Dates: start: 20060522, end: 20060522

REACTIONS (2)
  - COMPLETED SUICIDE [None]
  - DRUG LEVEL ABOVE THERAPEUTIC [None]
